FAERS Safety Report 7361849-9 (Version None)
Quarter: 2011Q1

REPORT INFORMATION
  Report Type: 
  Country: None (occurrence: None)
  Receive Date: 20110318
  Receipt Date: 20100914
  Transmission Date: 20110831
  Serious: Yes (Hospitalization, Other)
  Sender: FDA-Public Use
  Company Number: US-BAYER-201020797NA

PATIENT
  Sex: Female
  Weight: 72.562 kg

DRUGS (16)
  1. YAZ [Suspect]
     Indication: PRODUCT USED FOR UNKNOWN INDICATION
     Route: 048
     Dates: start: 20040901, end: 20041001
  2. YASMIN [Suspect]
     Route: 048
     Dates: start: 20040901, end: 20041001
  3. PHOSLO [Concomitant]
  4. METOCLOPRAMIDE [Concomitant]
  5. DIATX [Concomitant]
  6. ATENOLOL [Concomitant]
     Indication: HYPERTENSION
     Dosage: UNK
     Dates: start: 20041001
  7. DARVOCET [Concomitant]
  8. MINOXIDIL [Concomitant]
     Dosage: UNK
     Dates: start: 20041001, end: 20050101
  9. HEPARIN SODIUM [Concomitant]
     Dosage: UNK
     Dates: start: 20040101, end: 20070101
  10. CITALOPRAM HYDROBROMIDE [Concomitant]
     Indication: DEPRESSION
  11. UNCODEABLE ^UNCLASSIFIABLE^ [Concomitant]
     Indication: IMMUNOSUPPRESSANT DRUG THERAPY
  12. MYFORTIC [Concomitant]
     Indication: IMMUNOSUPPRESSANT DRUG THERAPY
  13. ADVIL LIQUI-GELS [Concomitant]
  14. PROGRAF [Concomitant]
     Indication: IMMUNOSUPPRESSANT DRUG THERAPY
  15. METHYLDOPA [Concomitant]
  16. LISINOPRIL [Concomitant]
     Dosage: UNK
     Dates: end: 20070601

REACTIONS (11)
  - DYSPNOEA [None]
  - DECREASED APPETITE [None]
  - HAEMODIALYSIS [None]
  - HYPERTENSIVE NEPHROPATHY [None]
  - GLOMERULONEPHRITIS ACUTE [None]
  - ANAEMIA OF CHRONIC DISEASE [None]
  - RENAL FAILURE CHRONIC [None]
  - HYPERKALAEMIA [None]
  - CHEST DISCOMFORT [None]
  - MALAISE [None]
  - HYPERTENSION [None]
